FAERS Safety Report 6973926-2 (Version None)
Quarter: 2010Q3

REPORT INFORMATION
  Report Type: 
  Country: None (occurrence: None)
  Receive Date: 20100909
  Receipt Date: 20100901
  Transmission Date: 20110219
  Serious: Yes (Other)
  Sender: FDA-Public Use
  Company Number: JP-ASTRAZENECA-2010SE38913

PATIENT
  Age: 60 Year
  Sex: Male

DRUGS (5)
  1. CRESTOR [Suspect]
     Indication: DYSLIPIDAEMIA
     Route: 048
     Dates: start: 20100706, end: 20100806
  2. OLMETEC [Concomitant]
     Route: 048
     Dates: start: 20090105
  3. ALESION [Concomitant]
     Route: 048
  4. ZYLORIC [Concomitant]
     Route: 048
  5. MYSLEE [Concomitant]
     Route: 048

REACTIONS (1)
  - STOMATITIS [None]
